FAERS Safety Report 19188332 (Version 1)
Quarter: 2021Q2

REPORT INFORMATION
  Report Type: Spontaneous
  Country: CN (occurrence: CN)
  Receive Date: 20210428
  Receipt Date: 20210428
  Transmission Date: 20210717
  Serious: Yes (Hospitalization)
  Sender: FDA-Public Use
  Company Number: NVSC2021CN094097

PATIENT
  Age: 86 Year
  Sex: Male
  Weight: 60 kg

DRUGS (18)
  1. OMEPRAZOLE. [Concomitant]
     Active Substance: OMEPRAZOLE
     Indication: RASH
     Dosage: UNK
     Route: 048
     Dates: start: 20210327
  2. METHYLPREDNISOLONE SODIUM SUCCINATE. [Concomitant]
     Active Substance: METHYLPREDNISOLONE SODIUM SUCCINATE
     Indication: RASH
     Dosage: UNK
     Route: 065
     Dates: start: 20210404
  3. DESLORATADINE. [Concomitant]
     Active Substance: DESLORATADINE
     Indication: PRURITUS
     Dosage: 5 MG
     Route: 048
  4. METHYLPREDNISOLONE. [Concomitant]
     Active Substance: METHYLPREDNISOLONE
     Dosage: UNK
     Route: 065
     Dates: start: 20210404
  5. AMOXICILLIN SODIUM AND CLAVULANATE POTASSIUM [Concomitant]
     Active Substance: AMOXICILLIN\CLAVULANATE POTASSIUM
     Dosage: 1 DF, BID
     Route: 048
  6. MOMETASONE FUROATE. [Concomitant]
     Active Substance: MOMETASONE FUROATE
     Indication: PRURITUS
     Dosage: UNK, QD
     Route: 065
  7. OLOPATADINE. [Concomitant]
     Active Substance: OLOPATADINE
     Indication: RASH
     Dosage: 5 MG, BIDX7 DAYS
     Route: 048
     Dates: start: 20210322
  8. METHYLPREDNISOLONE. [Concomitant]
     Active Substance: METHYLPREDNISOLONE
     Dosage: 24 MG, QD
     Route: 048
  9. HALOMETASONE [Concomitant]
     Active Substance: HALOMETASONE
     Indication: RASH
     Dosage: UNK
     Route: 065
     Dates: start: 20210327
  10. AMOKSIKLAV [Suspect]
     Active Substance: AMOXICILLIN\CLAVULANATE POTASSIUM
     Indication: INFECTION
     Dosage: 1 DF, BID
     Route: 048
     Dates: start: 20210412, end: 20210417
  11. OLOPATADINE. [Concomitant]
     Active Substance: OLOPATADINE
     Dosage: 5 MG, BIDX7 DAYS
     Route: 048
     Dates: start: 20210327
  12. AMOXICILLIN SODIUM AND CLAVULANATE POTASSIUM [Concomitant]
     Active Substance: AMOXICILLIN\CLAVULANATE POTASSIUM
     Indication: RASH
     Dosage: UNK
     Route: 065
     Dates: start: 20210404
  13. VITAMIN C [Concomitant]
     Active Substance: ASCORBIC ACID
     Indication: RASH
  14. VITAMIN C [Concomitant]
     Active Substance: ASCORBIC ACID
     Indication: PRURITUS
     Dosage: 2 G IVGTT
     Route: 065
  15. MOMETASONE FUROATE. [Concomitant]
     Active Substance: MOMETASONE FUROATE
     Indication: RASH
  16. METHYLPREDNISOLONE. [Concomitant]
     Active Substance: METHYLPREDNISOLONE
     Indication: RASH
     Dosage: UNK
     Route: 048
     Dates: start: 20210327
  17. METHYLPREDNISOLONE SODIUM SUCCINATE. [Concomitant]
     Active Substance: METHYLPREDNISOLONE SODIUM SUCCINATE
     Indication: PRURITUS
     Dosage: 20 MG, QD, IVGTT
     Route: 065
  18. DESLORATADINE. [Concomitant]
     Active Substance: DESLORATADINE
     Indication: RASH

REACTIONS (1)
  - Dermatitis allergic [Recovering/Resolving]

NARRATIVE: CASE EVENT DATE: 20210417
